FAERS Safety Report 5119642-3 (Version None)
Quarter: 2006Q4

REPORT INFORMATION
  Report Type: 
  Country: None (occurrence: None)
  Receive Date: 20061003
  Receipt Date: 20060828
  Transmission Date: 20070319
  Serious: Yes (Hospitalization)
  Sender: FDA-Public Use
  Company Number: CA-ROCHE-461052

PATIENT
  Age: 64 Year
  Sex: Male
  Weight: 69.7 kg

DRUGS (5)
  1. CAPECITABINE [Suspect]
     Dosage: 1000 MG/M2 GIVEN TWICE-DAILY WITH FIRST DOSE THE EVENING DAY 1 AND LAST DOSE THE MORNING DAY 15 3-W+
     Route: 048
     Dates: start: 20060809
  2. AVASTIN [Suspect]
     Dosage: 7.5 MG/KG GIVEN ON DAY ONE OF EVERY THREE WEEK CYCLE AS PER PROTOCOL.
     Route: 042
     Dates: start: 20060809
  3. OXALIPLATIN [Suspect]
     Dosage: 130 MG/M2 GIVEN ON DAY ONE OF EVERY THREE WEEK CYCLE AS PER PROTOCOL.
     Route: 042
     Dates: start: 20060809
  4. ZOCOR [Concomitant]
     Dates: start: 19960615
  5. ADALAT [Concomitant]
     Dates: start: 19960615

REACTIONS (4)
  - DIARRHOEA [None]
  - ILEUS PARALYTIC [None]
  - PNEUMONIA [None]
  - STAPHYLOCOCCAL SEPSIS [None]
